FAERS Safety Report 4264795-2 (Version None)
Quarter: 2004Q1

REPORT INFORMATION
  Report Type: 
  Country: None (occurrence: None)
  Receive Date: 20040105
  Receipt Date: 20031222
  Transmission Date: 20041129
  Serious: Yes (Other)
  Sender: FDA-Public Use
  Company Number: 2003191744US

PATIENT
  Age: 73 Year
  Sex: Male

DRUGS (3)
  1. VALDECOXIB TABLET [Suspect]
     Dosage: 10 MG, QD, ORAL
     Route: 048
     Dates: start: 20011001
  2. ENBREL [Suspect]
     Indication: RHEUMATOID ARTHRITIS
     Dosage: 25 MG, TWICE WEEKLY, SUBCUTANEOUS
     Route: 058
     Dates: start: 20021201, end: 20030228
  3. ARAVA [Suspect]
     Dosage: 20 MG,L QD, ORAL
     Route: 048
     Dates: start: 20000101

REACTIONS (1)
  - PULMONARY SARCOIDOSIS [None]
